FAERS Safety Report 13212386 (Version 2)
Quarter: 2017Q1

REPORT INFORMATION
  Report Type: Report from Study
  Country: US (occurrence: US)
  Receive Date: 20170210
  Receipt Date: 20170310
  Transmission Date: 20170428
  Serious: No
  Sender: FDA-Public Use
  Company Number: GXBR2017US000580

PATIENT
  Sex: Female
  Weight: 18.59 kg

DRUGS (3)
  1. OMNITROPE [Suspect]
     Active Substance: SOMATROPIN
     Dosage: 0.8 AND 0.9  MG, QOD
     Route: 058
  2. MULTI-VIT [Concomitant]
     Active Substance: VITAMINS
     Dosage: UNK DF, UNK
     Route: 065
  3. OMNITROPE [Suspect]
     Active Substance: SOMATROPIN
     Indication: SMALL FOR DATES BABY
     Dosage: 0.9 MG, QD
     Route: 058
     Dates: start: 201405

REACTIONS (5)
  - Neck pain [Unknown]
  - Myalgia [Unknown]
  - Insulin-like growth factor increased [Unknown]
  - Diarrhoea [Unknown]
  - Growth retardation [Unknown]
